FAERS Safety Report 8522819-8 (Version None)
Quarter: 2012Q3

REPORT INFORMATION
  Report Type: 
  Country: None (occurrence: None)
  Receive Date: 20120720
  Receipt Date: 20120711
  Transmission Date: 20120928
  Serious: Yes (Other)
  Sender: FDA-Public Use
  Company Number: JP-AMGEN-JPNSP2012043599

PATIENT
  Age: 45 Year
  Sex: Female

DRUGS (2)
  1. ENBREL [Suspect]
     Indication: PRODUCT USED FOR UNKNOWN INDICATION
     Dosage: UNK
     Dates: start: 20120301
  2. METHOTREXATE SODIUM [Suspect]
     Indication: MUSCULOSKELETAL PAIN
     Dosage: UNK
     Dates: start: 20111201, end: 20120601

REACTIONS (1)
  - BRONCHIAL OBSTRUCTION [None]
